FAERS Safety Report 6737628-X (Version None)
Quarter: 2010Q2

REPORT INFORMATION
  Report Type: 
  Country: None (occurrence: None)
  Receive Date: 20100524
  Receipt Date: 20100517
  Transmission Date: 20101027
  Serious: Yes (Other)
  Sender: FDA-Public Use
  Company Number: US-TEVA-235216USA

PATIENT
  Sex: Female

DRUGS (2)
  1. CLARAVIS [Suspect]
     Route: 048
     Dates: start: 20091216, end: 20100101
  2. YAZ [Concomitant]
     Indication: CONTRACEPTION

REACTIONS (1)
  - UNINTENDED PREGNANCY [None]
